FAERS Safety Report 13107213 (Version 2)
Quarter: 2017Q1

REPORT INFORMATION
  Report Type: Spontaneous
  Country: SE (occurrence: SE)
  Receive Date: 20170112
  Receipt Date: 20170116
  Transmission Date: 20170428
  Serious: Yes (Other)
  Sender: FDA-Public Use
  Company Number: SE-ROCHE-1877433

PATIENT
  Sex: Female

DRUGS (1)
  1. ROCEPHALIN [Suspect]
     Active Substance: CEFTRIAXONE
     Indication: BORRELIA INFECTION
     Route: 065

REACTIONS (4)
  - Urticaria [Unknown]
  - Pyrexia [Recovered/Resolved]
  - Pancytopenia [Recovering/Resolving]
  - Guillain-Barre syndrome [Recovering/Resolving]
